FAERS Safety Report 21571252 (Version 2)
Quarter: 2023Q1

REPORT INFORMATION
  Report Type: Report from Study
  Country: US (occurrence: US)
  Receive Date: 20221109
  Receipt Date: 20230114
  Transmission Date: 20230418
  Serious: Yes (Other)
  Sender: FDA-Public Use
  Company Number: US-002147023-NVSC2022US248623

PATIENT
  Sex: Male

DRUGS (1)
  1. COSENTYX [Suspect]
     Active Substance: SECUKINUMAB
     Indication: Product used for unknown indication
     Dosage: 150 MG, (COMPLETED 4 OF THE LOADING DOSES)
     Route: 058
     Dates: start: 202201

REACTIONS (2)
  - Loss of consciousness [Unknown]
  - Jaw fracture [Unknown]
